FAERS Safety Report 18360084 (Version 1)
Quarter: 2020Q4

REPORT INFORMATION
  Report Type: Spontaneous
  Country: US (occurrence: US)
  Receive Date: 20201007
  Receipt Date: 20201007
  Transmission Date: 20210114
  Serious: No
  Sender: FDA-Public Use
  Company Number: None

PATIENT
  Age: 59 Year
  Sex: Female
  Weight: 55.79 kg

DRUGS (1)
  1. COSENTYX [Suspect]
     Active Substance: SECUKINUMAB
     Indication: ANKYLOSING SPONDYLITIS
     Dosage: ?          OTHER FREQUENCY (1 PEN):EVERY4WEEKSASDIR ;?
     Route: 058
     Dates: start: 202007

REACTIONS (3)
  - Nasal congestion [None]
  - Rhinorrhoea [None]
  - Therapy interrupted [None]
